FAERS Safety Report 6927509-0 (Version None)
Quarter: 2010Q3

REPORT INFORMATION
  Report Type: 
  Country: None (occurrence: None)
  Receive Date: 20100817
  Receipt Date: 20100806
  Transmission Date: 20110219
  Serious: Yes (Life-Threatening)
  Sender: FDA-Public Use
  Company Number: JP-SANOFI-AVENTIS-2010SA030577

PATIENT
  Age: 0 Day
  Sex: Male
  Weight: 2.57 kg

DRUGS (8)
  1. MYSLEE [Suspect]
     Indication: DRUG EXPOSURE DURING PREGNANCY
     Route: 064
     Dates: end: 20100211
  2. ETHANOL [Suspect]
     Indication: DRUG EXPOSURE DURING PREGNANCY
     Route: 064
  3. SEDIEL [Concomitant]
     Indication: DRUG EXPOSURE DURING PREGNANCY
     Route: 064
     Dates: end: 20100211
  4. DEPAS [Concomitant]
     Indication: DRUG EXPOSURE DURING PREGNANCY
     Route: 064
     Dates: end: 20100211
  5. HALCION [Concomitant]
     Indication: DRUG EXPOSURE DURING PREGNANCY
     Route: 064
     Dates: end: 20100211
  6. LENDORMIN [Concomitant]
     Indication: DRUG EXPOSURE DURING PREGNANCY
     Route: 064
  7. SERTRALINE HYDROCHLORIDE [Concomitant]
     Indication: DRUG EXPOSURE DURING PREGNANCY
     Route: 064
  8. PZC [Concomitant]
     Indication: DRUG EXPOSURE DURING PREGNANCY
     Route: 064

REACTIONS (3)
  - DRUG EXPOSURE DURING PREGNANCY [None]
  - DRUG LEVEL INCREASED [None]
  - NEONATAL ASPHYXIA [None]
